FAERS Safety Report 7086879-6 (Version None)
Quarter: 2010Q4

REPORT INFORMATION
  Report Type: 
  Country: None (occurrence: None)
  Receive Date: 20101105
  Receipt Date: 20101105
  Transmission Date: 20110411
  Serious: Yes (Death)
  Sender: FDA-Public Use
  Company Number: JP-AMGEN-JPNCT2010003139

PATIENT

DRUGS (7)
  1. PANITUMUMAB [Suspect]
     Indication: COLORECTAL CANCER
     Dosage: UNK
     Dates: start: 20100706
  2. IRINOTECAN HYDROCHLORIDE [Concomitant]
     Indication: COLORECTAL CANCER
     Route: 041
  3. IRINOTECAN HYDROCHLORIDE [Concomitant]
     Route: 041
  4. TS 1 [Concomitant]
     Indication: COLORECTAL CANCER
     Route: 048
  5. TS 1 [Concomitant]
     Route: 048
  6. CORTICOSTEROIDS [Concomitant]
     Indication: PROPHYLAXIS
     Route: 065
  7. OXALIPLATIN [Concomitant]
     Indication: COLORECTAL CANCER
     Route: 041

REACTIONS (2)
  - DEATH [None]
  - DERMATITIS ACNEIFORM [None]
